FAERS Safety Report 24333707 (Version 3)
Quarter: 2024Q4

REPORT INFORMATION
  Report Type: Report from Study
  Country: CA (occurrence: CA)
  Receive Date: 20240918
  Receipt Date: 20241017
  Transmission Date: 20250114
  Serious: Yes (Hospitalization)
  Sender: OTSUKA
  Company Number: CA-OTSUKA-2024_025550

PATIENT
  Sex: Male

DRUGS (4)
  1. ARIPIPRAZOLE [Suspect]
     Active Substance: ARIPIPRAZOLE
     Indication: Bipolar disorder
     Dosage: 400 MG EVERY 4 WEEKS
     Route: 030
     Dates: start: 2018
  2. ARIPIPRAZOLE [Suspect]
     Active Substance: ARIPIPRAZOLE
     Dosage: 400 MG, QM
     Route: 030
  3. VENLAFAXINE [Concomitant]
     Active Substance: VENLAFAXINE HYDROCHLORIDE
     Indication: Product used for unknown indication
     Dosage: UNK
     Route: 065
  4. VENLAFAXINE [Concomitant]
     Active Substance: VENLAFAXINE HYDROCHLORIDE
     Dosage: INCREASED
     Route: 065

REACTIONS (2)
  - Mental disorder [Recovering/Resolving]
  - Depressed mood [Recovering/Resolving]
